FAERS Safety Report 4372369-8 (Version None)
Quarter: 2004Q2

REPORT INFORMATION
  Report Type: 
  Country: None (occurrence: None)
  Receive Date: 20040602
  Receipt Date: 20040520
  Transmission Date: 20050107
  Serious: Yes (Life-Threatening)
  Sender: FDA-Public Use
  Company Number: 200411736GDS

PATIENT
  Sex: Male
  Weight: 76 kg

DRUGS (1)
  1. AVELOX [Suspect]
     Indication: PHARYNGOTONSILLITIS
     Dosage: 400 MG, TOTAL DAILY, ORAL
     Route: 048

REACTIONS (3)
  - DYSPNOEA [None]
  - PARESIS [None]
  - POLYNEUROPATHY [None]
